FAERS Safety Report 25503217 (Version 1)
Quarter: 2025Q3

REPORT INFORMATION
  Report Type: Spontaneous
  Country: US (occurrence: US)
  Receive Date: 20250702
  Receipt Date: 20250702
  Transmission Date: 20251021
  Serious: No
  Sender: ABBVIE
  Company Number: US-ABBVIE-6341631

PATIENT
  Age: 77 Year
  Sex: Female
  Weight: 90.718 kg

DRUGS (5)
  1. CYCLOSPORINE [Suspect]
     Active Substance: CYCLOSPORINE
     Indication: Dry eye
     Route: 047
     Dates: start: 20250620, end: 20250621
  2. SPIRONOLACTONE [Concomitant]
     Active Substance: SPIRONOLACTONE
     Indication: Fluid retention
  3. NP THYROID [Concomitant]
     Active Substance: LEVOTHYROXINE\LIOTHYRONINE
     Indication: Thyroid disorder
  4. SIMILASAN FOR INFLAMMATION OF THE MOUTH AND THROAT [Suspect]
     Active Substance: HOMEOPATHICS
     Indication: Dry eye
     Route: 047
     Dates: start: 2024
  5. SIMILASAN FOR INFLAMMATION OF THE MOUTH AND THROAT [Suspect]
     Active Substance: HOMEOPATHICS
     Indication: Dry eye
     Route: 047
     Dates: start: 2020, end: 2024

REACTIONS (4)
  - Eye irritation [Recovering/Resolving]
  - Eye pain [Recovering/Resolving]
  - Drug ineffective [Not Recovered/Not Resolved]
  - Reading disorder [Recovered/Resolved]

NARRATIVE: CASE EVENT DATE: 20250620
